FAERS Safety Report 23219980 (Version 2)
Quarter: 2023Q4

REPORT INFORMATION
  Report Type: Spontaneous
  Country: CN (occurrence: CN)
  Receive Date: 20231122
  Receipt Date: 20231218
  Transmission Date: 20240110
  Serious: Yes (Hospitalization, Other)
  Sender: FDA-Public Use
  Company Number: CN-PRINSTON PHARMACEUTICAL INC.-2023PRN00589

PATIENT
  Age: 69 Year
  Sex: Male

DRUGS (4)
  1. DULOXETINE [Suspect]
     Active Substance: DULOXETINE
     Indication: Depression
     Dosage: 60 MG, 1X/DAY IN THE MORNING
     Route: 048
     Dates: start: 20220222, end: 20220311
  2. MIRTAZAPINE [Concomitant]
     Active Substance: MIRTAZAPINE
     Indication: Depression
     Dosage: 15 MG, 1X/DAY AT NIGHT
     Route: 048
     Dates: end: 20220311
  3. MIRTAZAPINE [Concomitant]
     Active Substance: MIRTAZAPINE
     Dosage: 15 MG, 1X/DAY AT NIGHT
     Dates: start: 202204
  4. NIFEDIPINE [Concomitant]
     Active Substance: NIFEDIPINE
     Indication: Hypertension
     Dosage: 30 MG (CONTROLLED-RELEASE), 1X/DAY (IN THE MORNING)
     Route: 048

REACTIONS (6)
  - Neuroleptic malignant syndrome [Recovered/Resolved]
  - Rhabdomyolysis [Recovered/Resolved]
  - Respiratory distress [Recovered/Resolved]
  - Myasthenia gravis [Recovered/Resolved]
  - Acute kidney injury [Recovered/Resolved]
  - Atrial fibrillation [Recovered/Resolved]

NARRATIVE: CASE EVENT DATE: 20220306
